FAERS Safety Report 10305484 (Version 3)
Quarter: 2014Q3

REPORT INFORMATION
  Report Type: Other
  Country: NO (occurrence: NO)
  Receive Date: 20140715
  Receipt Date: 20140718
  Transmission Date: 20150326
  Serious: Yes (Death, Other)
  Sender: FDA-Public Use
  Company Number: NO-TAKEDA-2014TEU005700AA

PATIENT
  Age: 70 Year
  Sex: Male

DRUGS (16)
  1. MEDROL [Suspect]
     Active Substance: METHYLPREDNISOLONE
     Dosage: 50 MG, QD
     Route: 048
     Dates: start: 20140429, end: 20140526
  2. FOLSYRE NAF [Concomitant]
     Active Substance: FOLIC ACID
     Indication: PROPHYLAXIS
     Dosage: 1 MG, QD
     Route: 048
  3. OCTAGAM IMMUNE GLOBULIN (HUMAN) [Concomitant]
     Active Substance: HUMAN IMMUNOGLOBULIN G
     Dosage: 30 G, QD
     Route: 041
     Dates: start: 20140426, end: 20140430
  4. PREDNISOLON [Suspect]
     Active Substance: PREDNISOLONE
     Indication: PRODUCT USED FOR UNKNOWN INDICATION
     Dosage: 50 MG, QD
     Route: 048
     Dates: start: 20140429, end: 20140526
  5. LANSOPRAZOLE. [Interacting]
     Active Substance: LANSOPRAZOLE
     Indication: PROPHYLAXIS AGAINST GASTROINTESTINAL ULCER
     Dosage: 30 MG, QD
     Route: 048
     Dates: end: 20140509
  6. MEDROL [Suspect]
     Active Substance: METHYLPREDNISOLONE
     Indication: RHEUMATOID ARTHRITIS
     Dosage: 48 MG, QD
     Route: 048
     Dates: start: 201312, end: 20140426
  7. ALBYL-E [Concomitant]
     Active Substance: ASPIRIN\MAGNESIUM OXIDE
     Dosage: CHANGED TO ALBYL-E SUPP 150 MG X 1 DURING HOSPITAL STAY
     Route: 048
  8. IBUX [Concomitant]
     Active Substance: IBUPROFEN
     Dosage: 600 MG, TID
     Route: 048
     Dates: start: 20140411, end: 20140413
  9. SOMAC [Concomitant]
     Active Substance: PANTOPRAZOLE SODIUM
     Indication: PROPHYLAXIS AGAINST GASTROINTESTINAL ULCER
     Dosage: 40 MG, QD
     Route: 048
     Dates: start: 20140523
  10. MEDROL [Suspect]
     Active Substance: METHYLPREDNISOLONE
     Dosage: HIGH DOSE
     Route: 048
     Dates: start: 20140426, end: 20140428
  11. CALCIGRAN FORTE [Concomitant]
     Indication: OSTEOPOROSIS PROPHYLAXIS
     Dosage: 1000 MG, QD
     Route: 048
     Dates: end: 20140502
  12. TREXALL [Suspect]
     Active Substance: METHOTREXATE SODIUM
     Indication: RHEUMATOID ARTHRITIS
     Dosage: 10 MG, 1/WEEK
     Route: 048
     Dates: start: 20010307, end: 20140501
  13. CORDARONE [Interacting]
     Active Substance: AMIODARONE HYDROCHLORIDE
     Indication: PRODUCT USED FOR UNKNOWN INDICATION
     Dosage: 200 MG, QD
     Route: 048
     Dates: end: 20140511
  14. FLUCONAZOL [Interacting]
     Active Substance: FLUCONAZOLE
     Indication: FUNGAL INFECTION
     Dosage: 200 MG, QD
     Route: 048
     Dates: start: 20140411, end: 20140508
  15. REMERON [Concomitant]
     Active Substance: MIRTAZAPINE
     Indication: DEPRESSION
     Dosage: 30 MG, QD
     Route: 048
     Dates: end: 20140502
  16. NEXIUM                             /01479303/ [Concomitant]
     Indication: PROPHYLAXIS AGAINST GASTROINTESTINAL ULCER
     Dosage: 40 MG, QD
     Route: 048
     Dates: start: 20140509, end: 20140522

REACTIONS (5)
  - Pancytopenia [Fatal]
  - Drug interaction [Fatal]
  - Immunosuppression [Fatal]
  - Acute respiratory distress syndrome [Fatal]
  - Pneumocystis jirovecii pneumonia [Fatal]

NARRATIVE: CASE EVENT DATE: 201404
